FAERS Safety Report 5235916-X (Version None)
Quarter: 2007Q1

REPORT INFORMATION
  Report Type: 
  Country: None (occurrence: None)
  Receive Date: 20061208
  Receipt Date: 20051220
  Transmission Date: 20070707
  Serious: Yes (Other)
  Sender: FDA-Public Use
  Company Number: 2005UW18365

PATIENT
  Age: 78 Year
  Sex: Male
  Weight: 90.718 kg

DRUGS (7)
  1. CRESTOR [Suspect]
     Indication: BLOOD CHOLESTEROL INCREASED
     Dosage: 5 MG QOD PO
     Route: 048
     Dates: start: 20051010, end: 20051113
  2. ALTACE [Concomitant]
  3. TRIAMTERENE [Concomitant]
  4. FOSAMAX [Concomitant]
  5. CITRACAL + D [Concomitant]
  6. ASPIRIN [Concomitant]
  7. ZYRTEC [Concomitant]

REACTIONS (4)
  - BLOOD TRIGLYCERIDES INCREASED [None]
  - CONSTIPATION [None]
  - HYPERHIDROSIS [None]
  - INSOMNIA [None]
